FAERS Safety Report 11547425 (Version 1)
Quarter: 2015Q3

REPORT INFORMATION
  Report Type: Spontaneous
  Country: US (occurrence: US)
  Receive Date: 20150903
  Receipt Date: 20150903
  Transmission Date: 20151125
  Serious: No
  Sender: FDA-Public Use
  Company Number: US-ELI_LILLY_AND_COMPANY-US201102002360

PATIENT
  Sex: Female

DRUGS (3)
  1. HUMALOG [Suspect]
     Active Substance: INSULIN LISPRO
     Indication: DIABETES MELLITUS
     Dosage: UNK, 3/D
     Dates: start: 2008
  2. HUMALOG [Suspect]
     Active Substance: INSULIN LISPRO
     Indication: DIABETES MELLITUS
     Dosage: UNK, 3/D
  3. LANTUS [Concomitant]
     Active Substance: INSULIN GLARGINE
     Dosage: 46 U, EACH EVENING

REACTIONS (17)
  - Fall [Unknown]
  - Tongue disorder [Unknown]
  - Blood glucose increased [Unknown]
  - Malaise [Unknown]
  - Gastrointestinal disorder [Unknown]
  - Accidental exposure to product [Unknown]
  - Drug ineffective [Unknown]
  - Swollen tongue [Unknown]
  - Blood glucose fluctuation [Unknown]
  - Glossodynia [Unknown]
  - Bronchitis [Unknown]
  - Varicose vein [Unknown]
  - Immune system disorder [Unknown]
  - Arterial disorder [Unknown]
  - Vein disorder [Not Recovered/Not Resolved]
  - Spider vein [Unknown]
  - Suture insertion [Unknown]

NARRATIVE: CASE EVENT DATE: 2010
